FAERS Safety Report 5275649-7 (Version None)
Quarter: 2007Q1

REPORT INFORMATION
  Report Type: 
  Country: None (occurrence: None)
  Receive Date: 20070326
  Receipt Date: 20070315
  Transmission Date: 20070707
  Serious: Yes (Other)
  Sender: FDA-Public Use
  Company Number: US-AVENTIS-200711866US

PATIENT
  Sex: Female

DRUGS (3)
  1. LANTUS [Suspect]
  2. LANTUS [Suspect]
     Route: 051
  3. OPTICLIK (INSULIN INJECTION PEN) [Suspect]

REACTIONS (2)
  - DIABETIC KETOACIDOSIS [None]
  - MEDICATION ERROR [None]
